FAERS Safety Report 5735815-0 (Version None)
Quarter: 2008Q2

REPORT INFORMATION
  Report Type: 
  Country: None (occurrence: None)
  Receive Date: 20080508
  Receipt Date: 20080508
  Transmission Date: 20081010
  Serious: No
  Sender: FDA-Public Use
  Company Number: None

PATIENT
  Sex: Female
  Weight: 82.5547 kg

DRUGS (2)
  1. LEXAPRO [Suspect]
     Indication: ANXIETY
     Dosage: 20 MG
     Dates: start: 20020510, end: 20080426
  2. LEXAPRO [Suspect]
     Indication: DEPRESSION
     Dosage: 20 MG
     Dates: start: 20020510, end: 20080426

REACTIONS (10)
  - ARTHRALGIA [None]
  - ASTHENIA [None]
  - CONSTIPATION [None]
  - FOOD CRAVING [None]
  - GAIT DISTURBANCE [None]
  - MIGRAINE [None]
  - PAIN IN EXTREMITY [None]
  - SLEEP DISORDER [None]
  - TENDON PAIN [None]
  - WEIGHT INCREASED [None]
